FAERS Safety Report 14496776 (Version 3)
Quarter: 2018Q2

REPORT INFORMATION
  Report Type: Spontaneous
  Country: US (occurrence: US)
  Receive Date: 20180207
  Receipt Date: 20180607
  Transmission Date: 20180711
  Serious: No
  Sender: FDA-Public Use
  Company Number: US-PFIZER INC-2018047838

PATIENT
  Age: 77 Year
  Sex: Male
  Weight: 80 kg

DRUGS (6)
  1. FINASTERIDE. [Concomitant]
     Active Substance: FINASTERIDE
     Indication: PROSTATOMEGALY
     Dosage: 5 MG, 1X/DAY
  2. ANDROGEL [Concomitant]
     Active Substance: TESTOSTERONE
     Dosage: 3 DF, DAILY (1.62% GEL PUMP, 3 PUMPS DAILY)
     Route: 061
     Dates: start: 201801
  3. ANDROGEL [Concomitant]
     Active Substance: TESTOSTERONE
     Dosage: UNK
     Dates: end: 201711
  4. XALKORI [Suspect]
     Active Substance: CRIZOTINIB
     Dosage: 250 MG, 2X/DAY
     Route: 048
     Dates: start: 20171230
  5. VITAMIN D [Concomitant]
     Active Substance: CHOLECALCIFEROL
     Dosage: 5000 IU, UNK
  6. XALKORI [Suspect]
     Active Substance: CRIZOTINIB
     Indication: NON-SMALL CELL LUNG CANCER
     Dosage: 200 MG, UNK
     Dates: start: 201712, end: 201712

REACTIONS (6)
  - Orthostatic hypotension [Not Recovered/Not Resolved]
  - Oedema [Recovering/Resolving]
  - Rash [Recovered/Resolved]
  - Drug dispensing error [Unknown]
  - Dizziness [Unknown]
  - Condition aggravated [Not Recovered/Not Resolved]

NARRATIVE: CASE EVENT DATE: 201801
